FAERS Safety Report 6422348-1 (Version None)
Quarter: 2009Q4

REPORT INFORMATION
  Report Type: 
  Country: None (occurrence: None)
  Receive Date: 20091030
  Receipt Date: 20091022
  Transmission Date: 20100525
  Serious: Yes (Hospitalization)
  Sender: FDA-Public Use
  Company Number: PHHO2009US10759

PATIENT
  Sex: Male
  Weight: 75.1 kg

DRUGS (12)
  1. RAD 666 RAD+TAB [Suspect]
     Indication: NEOPLASM
     Dosage: 5MG M-W-F
     Route: 048
     Dates: start: 20090814, end: 20090824
  2. AVASTIN [Suspect]
     Indication: NEOPLASM
     Dosage: UNK
     Dates: start: 20090813, end: 20090824
  3. WARFARIN SODIUM [Concomitant]
  4. ATIVAN [Concomitant]
  5. METHADONE [Concomitant]
  6. PERCOCET [Concomitant]
  7. ENALAPRIL [Concomitant]
  8. REGLAN [Concomitant]
  9. NEURONTIN [Concomitant]
  10. TYLENOL [Concomitant]
  11. OXYCODONE [Concomitant]
  12. TUMS [Concomitant]

REACTIONS (7)
  - CONSTIPATION [None]
  - DEHYDRATION [None]
  - FAECALOMA [None]
  - ILEUS [None]
  - NAUSEA [None]
  - SINUS TACHYCARDIA [None]
  - VOMITING [None]
